FAERS Safety Report 5470533-8 (Version None)
Quarter: 2007Q3

REPORT INFORMATION
  Report Type: 
  Country: None (occurrence: None)
  Receive Date: 20070927
  Receipt Date: 20070927
  Transmission Date: 20080115
  Serious: No
  Sender: FDA-Public Use
  Company Number: None

PATIENT
  Age: 49 Year
  Sex: Female
  Weight: 65.7716 kg

DRUGS (1)
  1. MUCUS RELIEF 400MG LNK INTERNATIONAL INC. [Suspect]
     Indication: PULMONARY CONGESTION
     Dosage: 400MG EVERY 4 HOURS PO
     Route: 048
     Dates: start: 20070924, end: 20070925

REACTIONS (3)
  - DRUG HYPERSENSITIVITY [None]
  - PHARMACEUTICAL PRODUCT COMPLAINT [None]
  - POOR QUALITY DRUG ADMINISTERED [None]
